FAERS Safety Report 21246267 (Version 1)
Quarter: 2022Q3

REPORT INFORMATION
  Report Type: Spontaneous
  Country: CA (occurrence: CA)
  Receive Date: 20220824
  Receipt Date: 20220824
  Transmission Date: 20221026
  Serious: Yes (Other)
  Sender: FDA-Public Use
  Company Number: CA-TEVA-2022-CA-2067172

PATIENT
  Age: 13 Year
  Sex: Female
  Weight: 62 kg

DRUGS (2)
  1. FLUOXETINE [Suspect]
     Active Substance: FLUOXETINE HYDROCHLORIDE
     Indication: Anxiety
     Dosage: 10 MILLIGRAM DAILY;
     Route: 048
  2. FLUOXETINE [Suspect]
     Active Substance: FLUOXETINE HYDROCHLORIDE
     Dosage: 10 MILLIGRAM DAILY;
     Route: 048

REACTIONS (3)
  - Intentional self-injury [Recovered/Resolved]
  - Anxiety [Recovered/Resolved]
  - Depressed mood [Recovered/Resolved]
